FAERS Safety Report 7518583-1 (Version None)
Quarter: 2011Q2

REPORT INFORMATION
  Report Type: 
  Country: None (occurrence: None)
  Receive Date: 20110602
  Receipt Date: 20110525
  Transmission Date: 20111010
  Serious: Yes (Death, Hospitalization, Other)
  Sender: FDA-Public Use
  Company Number: US-NOVOPROD-325483

PATIENT
  Sex: Male

DRUGS (11)
  1. GLYBURIDE [Concomitant]
  2. LIPITOR [Concomitant]
  3. JANUVIA [Concomitant]
  4. VICTOZA [Suspect]
     Indication: TYPE 2 DIABETES MELLITUS
     Dosage: .6 MG, QD
     Route: 058
     Dates: start: 20100324
  5. LOPRESSOR [Concomitant]
  6. VICTOZA [Suspect]
     Dosage: 1.2 MG, QD
     Route: 058
     Dates: start: 20100524
  7. NORVASC [Concomitant]
  8. NEURONTIN [Concomitant]
  9. LASIX [Concomitant]
  10. ACTOS [Concomitant]
  11. METFORMIN HCL [Concomitant]

REACTIONS (8)
  - WEIGHT DECREASED [None]
  - RENAL FAILURE ACUTE [None]
  - SEPSIS [None]
  - RENAL FAILURE CHRONIC [None]
  - HYPERKALAEMIA [None]
  - CELLULITIS [None]
  - ACUTE MYOCARDIAL INFARCTION [None]
  - GLYCOSYLATED HAEMOGLOBIN DECREASED [None]
